FAERS Safety Report 6639673-1 (Version None)
Quarter: 2010Q1

REPORT INFORMATION
  Report Type: 
  Country: None (occurrence: None)
  Receive Date: 20100315
  Receipt Date: 20100226
  Transmission Date: 20100710
  Serious: Yes (Hospitalization)
  Sender: FDA-Public Use
  Company Number: CIP09001512

PATIENT
  Sex: Female
  Weight: 2.4 kg

DRUGS (6)
  1. ACTONEL [Suspect]
     Dosage: 35MG REGIMEN UNKNOWN, TRANSPLACENTAL
     Route: 064
     Dates: end: 20080828
  2. VITAMINS WITH MINERALS [Concomitant]
  3. MATERFOLIC  (FOLIC ACID) [Concomitant]
  4. ANAESTHETICS [Concomitant]
  5. ANITBIOTICS [Concomitant]
  6. PENVIR (FAMCICLOVIR) [Concomitant]

REACTIONS (10)
  - APGAR SCORE LOW [None]
  - CAESAREAN SECTION [None]
  - CONGENITAL RUBELLA INFECTION [None]
  - CONGENITAL VARICELLA INFECTION [None]
  - FOETAL DISTRESS SYNDROME [None]
  - FOETAL HEART RATE DECELERATION [None]
  - MATERNAL CONDITION AFFECTING FOETUS [None]
  - MATERNAL DRUGS AFFECTING FOETUS [None]
  - PREMATURE BABY [None]
  - RESPIRATORY DISORDER NEONATAL [None]
